FAERS Safety Report 5392790-9 (Version None)
Quarter: 2007Q3

REPORT INFORMATION
  Report Type: 
  Country: None (occurrence: None)
  Receive Date: 20070718
  Receipt Date: 20070704
  Transmission Date: 20080115
  Serious: Yes (Hospitalization)
  Sender: FDA-Public Use
  Company Number: 190007L07JPN

PATIENT
  Age: 29 Year
  Sex: Female

DRUGS (2)
  1. MENOTROPINS [Suspect]
     Dosage: 150 IU
     Dates: start: 20040601
  2. CHORIONIC GONADTROPIN [Suspect]
     Dosage: 10000 IU
     Dates: start: 20040601

REACTIONS (16)
  - ABDOMINAL DISTENSION [None]
  - ASCITES [None]
  - BLOOD FIBRINOGEN INCREASED [None]
  - CHEST DISCOMFORT [None]
  - DRUG EXPOSURE DURING PREGNANCY [None]
  - HAEMATOCRIT INCREASED [None]
  - HAEMOCONCENTRATION [None]
  - HAEMOGLOBIN INCREASED [None]
  - LABORATORY TEST ABNORMAL [None]
  - MULTIPLE PREGNANCY [None]
  - OVARIAN HYPERSTIMULATION SYNDROME [None]
  - PELVIC FLUID COLLECTION [None]
  - PLATELET COUNT INCREASED [None]
  - PLEURAL EFFUSION [None]
  - PROTEIN TOTAL INCREASED [None]
  - WHITE BLOOD CELL COUNT INCREASED [None]
